FAERS Safety Report 13302474 (Version 3)
Quarter: 2019Q1

REPORT INFORMATION
  Report Type: Spontaneous
  Country: US (occurrence: US)
  Receive Date: 20170307
  Receipt Date: 20190228
  Transmission Date: 20190417
  Serious: No
  Sender: FDA-Public Use
  Company Number: US-009507513-1702USA005948

PATIENT
  Age: 55 Year
  Sex: Male
  Weight: 49.52 kg

DRUGS (9)
  1. ZOFRAN [Concomitant]
     Active Substance: ONDANSETRON HYDROCHLORIDE
     Dosage: UNK
  2. LEVOFLOXACIN. [Concomitant]
     Active Substance: LEVOFLOXACIN
     Dosage: UNK
  3. INTRON A [Suspect]
     Active Substance: INTERFERON ALFA-2B
     Dosage: 300,000 UNITS (0.05 ML) STRENGTH: 18 MM UNIT/3 ML)
     Route: 023
     Dates: start: 20161205
  4. INTRON A [Suspect]
     Active Substance: INTERFERON ALFA-2B
     Indication: LUNG NEOPLASM MALIGNANT
     Dosage: 0.05 ML, TIW (STRENGTH: 18 MM UNIT/3 ML)
     Route: 023
     Dates: start: 20161129
  5. IMODIUM [Concomitant]
     Active Substance: LOPERAMIDE HYDROCHLORIDE
     Dosage: UNK
  6. METOCLOPRAMIDE. [Concomitant]
     Active Substance: METOCLOPRAMIDE
     Dosage: UNK
  7. AFATINIB [Concomitant]
     Active Substance: AFATINIB
     Indication: LUNG NEOPLASM MALIGNANT
     Dosage: 40 MG, UNK
     Route: 048
     Dates: start: 20170119, end: 20170331
  8. EUCERIN CREME [Concomitant]
     Dosage: UNK
  9. TAGRISSO [Concomitant]
     Active Substance: OSIMERTINIB

REACTIONS (4)
  - Rhinorrhoea [Recovered/Resolved]
  - Rash [Recovered/Resolved]
  - Diarrhoea [Recovered/Resolved]
  - Product use in unapproved indication [Unknown]

NARRATIVE: CASE EVENT DATE: 201612
